FAERS Safety Report 10669316 (Version 3)
Quarter: 2015Q2

REPORT INFORMATION
  Report Type: Spontaneous
  Country: US (occurrence: US)
  Receive Date: 20141222
  Receipt Date: 20150507
  Transmission Date: 20150821
  Serious: Yes (Life-Threatening, Congenital Anomaly, Other)
  Sender: FDA-Public Use
  Company Number: US-ELI_LILLY_AND_COMPANY-US201412007575

PATIENT

DRUGS (1)
  1. PROZAC [Suspect]
     Active Substance: FLUOXETINE HYDROCHLORIDE
     Indication: PRODUCT USED FOR UNKNOWN INDICATION
     Dosage: 1 DF, UNKNOWN
     Route: 064

REACTIONS (9)
  - Foetal exposure during pregnancy [Recovered/Resolved]
  - Dyspnoea [Unknown]
  - Sinus bradycardia [Unknown]
  - Chest discomfort [Unknown]
  - Fallot^s tetralogy [Recovered/Resolved with Sequelae]
  - Atrial septal defect [Recovered/Resolved with Sequelae]
  - Pulmonary valve incompetence [Recovered/Resolved with Sequelae]
  - Junctional ectopic tachycardia [Recovered/Resolved with Sequelae]
  - Pulmonary valve stenosis [Recovered/Resolved with Sequelae]
